FAERS Safety Report 7778363-9 (Version None)
Quarter: 2011Q3

REPORT INFORMATION
  Report Type: 
  Country: None (occurrence: None)
  Receive Date: 20110926
  Receipt Date: 20110913
  Transmission Date: 20111222
  Serious: Yes (Other)
  Sender: FDA-Public Use
  Company Number: US-BAYER-2011-003311

PATIENT
  Age: 26 Year
  Sex: Female
  Weight: 108.84 kg

DRUGS (13)
  1. VALTREX [Concomitant]
     Dosage: UNK
  2. CITRUS BIOFLAVONID [Concomitant]
     Dosage: UNK
     Dates: start: 20081101
  3. QVAR 40 [Concomitant]
     Indication: ASTHMA
     Dosage: UNK
     Dates: start: 20071001
  4. ALBUTEROL [Concomitant]
     Indication: ASTHMA
     Dosage: UNK
     Dates: start: 20071001
  5. ROLAIDS [Concomitant]
     Indication: ANTACID THERAPY
     Dosage: UNK UNK, PRN
  6. YASMIN [Suspect]
     Indication: CONTRACEPTION
     Dosage: UNK
     Dates: start: 20080301, end: 20091201
  7. YASMIN [Suspect]
     Indication: PREMENSTRUAL SYNDROME
     Dosage: UNK
     Dates: start: 20070201, end: 20070801
  8. CALCIMIUM SUPPLEMENTS [Concomitant]
     Dosage: UNK
     Dates: start: 20081101
  9. YASMIN [Suspect]
  10. WELLBUTRIN [Concomitant]
     Indication: AFFECTIVE DISORDER
     Dosage: UNK
     Dates: start: 20070101
  11. NORTRIPTYLINE HCL [Concomitant]
     Indication: FIBROMYALGIA
     Dosage: UNK
     Dates: start: 20070101, end: 20090101
  12. EMETROL [Concomitant]
     Indication: NAUSEA
     Dosage: UNK UNK, PRN
  13. PRILOSEC [Concomitant]
     Indication: GASTROOESOPHAGEAL REFLUX DISEASE
     Dosage: UNK
     Dates: start: 20070101

REACTIONS (6)
  - ANXIETY [None]
  - EMOTIONAL DISTRESS [None]
  - CHOLECYSTITIS CHRONIC [None]
  - CHOLELITHIASIS [None]
  - ABDOMINAL PAIN [None]
  - INJURY [None]
